FAERS Safety Report 5567522-1 (Version None)
Quarter: 2007Q4

REPORT INFORMATION
  Report Type: 
  Country: None (occurrence: None)
  Receive Date: 20071130
  Receipt Date: 20070905
  Transmission Date: 20080405
  Serious: No
  Sender: FDA-Public Use
  Company Number: US200709000929

PATIENT
  Age: 71 Year
  Sex: Female

DRUGS (3)
  1. BYETTA [Suspect]
     Dosage: 5 UG,
     Dates: start: 20070601, end: 20070101
  2. BYETTA [Suspect]
     Dosage: 5 UG,
     Dates: start: 20070101, end: 20070904
  3. EXENATIDE 5MCG PEN, DISPOSABLE DEVICE (EXENATIDEPEN (5 MCG))) PEN,DISP [Concomitant]

REACTIONS (3)
  - CHOLELITHIASIS [None]
  - DIARRHOEA [None]
  - VOMITING [None]
